FAERS Safety Report 9569593 (Version 1)
Quarter: 2013Q3

REPORT INFORMATION
  Report Type: Spontaneous
  Country: US (occurrence: US)
  Receive Date: 20130930
  Receipt Date: 20130930
  Transmission Date: 20140515
  Serious: No
  Sender: FDA-Public Use
  Company Number: US-AMGEN-USASP2013066222

PATIENT
  Age: 60 Year
  Sex: Male
  Weight: 122.45 kg

DRUGS (7)
  1. ENBREL [Suspect]
     Indication: PRODUCT USED FOR UNKNOWN INDICATION
     Dosage: 50 MG, QWK
     Route: 065
  2. OMEPRAZOLE [Concomitant]
     Dosage: 10 MG, UNK
  3. VITAMIN B12                        /00056201/ [Concomitant]
     Dosage: 1000 UNK, UNK
  4. CALCIUM [Concomitant]
     Dosage: 500 UNK, UNK
  5. MULTIVITAMIN                       /00097801/ [Concomitant]
     Dosage: UNK
  6. BIOTIN [Concomitant]
     Dosage: 5000 UNK, UNK
  7. CIALIS DIARIO [Concomitant]
     Dosage: 10 MG, UNK

REACTIONS (1)
  - Sinusitis [Recovered/Resolved]
